APPROVED DRUG PRODUCT: FOSCAVIR
Active Ingredient: FOSCARNET SODIUM
Strength: 6GM/250ML (24MG/ML)
Dosage Form/Route: SOLUTION;INTRAVENOUS
Application: N020068 | Product #001 | TE Code: AP
Applicant: CLINIGEN HEALTHCARE LTD
Approved: Sep 27, 1991 | RLD: Yes | RS: Yes | Type: RX